FAERS Safety Report 8370514-0 (Version None)
Quarter: 2012Q2

REPORT INFORMATION
  Report Type: 
  Country: None (occurrence: None)
  Receive Date: 20120518
  Receipt Date: 20120515
  Transmission Date: 20120825
  Serious: Yes (Other)
  Sender: FDA-Public Use
  Company Number: BR-PFIZER INC-2012118730

PATIENT
  Sex: Female

DRUGS (2)
  1. LYRICA [Suspect]
     Indication: SPINAL PAIN
  2. LYRICA [Suspect]
     Indication: PAIN IN EXTREMITY
     Dosage: UNK
     Route: 048
     Dates: start: 20110101

REACTIONS (2)
  - APHONIA [None]
  - DYSPNOEA [None]
